FAERS Safety Report 8299809-6 (Version None)
Quarter: 2012Q2

REPORT INFORMATION
  Report Type: 
  Country: None (occurrence: None)
  Receive Date: 20120419
  Receipt Date: 20120419
  Transmission Date: 20120825
  Serious: Yes (Life-Threatening)
  Sender: FDA-Public Use
  Company Number: None

PATIENT
  Age: 30 Year
  Weight: 79.378 kg

DRUGS (1)
  1. CLARITIN-D [Suspect]

REACTIONS (1)
  - DYSPNOEA [None]
